FAERS Safety Report 8477060-4 (Version None)
Quarter: 2012Q2

REPORT INFORMATION
  Report Type: 
  Country: None (occurrence: None)
  Receive Date: 20120629
  Receipt Date: 20120622
  Transmission Date: 20120825
  Serious: Yes (Other)
  Sender: FDA-Public Use
  Company Number: US-PFIZER INC-2012136649

PATIENT
  Sex: Female
  Weight: 66.213 kg

DRUGS (6)
  1. LYSINE [Concomitant]
     Dosage: 500 MG, UNK
     Dates: start: 20120229
  2. SUTENT [Suspect]
     Indication: METASTATIC RENAL CELL CARCINOMA
     Dosage: 50 MG, 1X/DAY
     Route: 048
     Dates: start: 20120229, end: 20120531
  3. EVENING PRIMROSE OIL [Concomitant]
     Dosage: 1000 MG, DAILY
     Dates: start: 20120229
  4. SUTENT [Suspect]
     Indication: RENAL CANCER
  5. METOPROLOL TARTRATE [Concomitant]
     Dosage: 25 MG, 2X/DAY
     Dates: start: 20120229
  6. LISINOPRIL [Concomitant]
     Dosage: 10 MG, DAILY
     Dates: start: 20120229

REACTIONS (3)
  - HEPATIC FAILURE [None]
  - THROMBOCYTOPENIA [None]
  - HEPATOTOXICITY [None]
